FAERS Safety Report 10228819 (Version 2)
Quarter: 2014Q2

REPORT INFORMATION
  Report Type: Report from Study
  Country: US (occurrence: US)
  Receive Date: 20140610
  Receipt Date: 20140623
  Transmission Date: 20141212
  Serious: Yes (Life-Threatening, Hospitalization)
  Sender: FDA-Public Use
  Company Number: US-ACTELION-A-NJ2014-099863

PATIENT
  Age: 72 Year
  Sex: Male

DRUGS (2)
  1. MACITENTAN [Suspect]
     Indication: PULMONARY ARTERIAL HYPERTENSION
     Dosage: 10 MG, QD
     Route: 048
     Dates: start: 20140425, end: 201405
  2. MACITENTAN [Suspect]
     Dosage: 10 MG, QD
     Route: 048
     Dates: start: 201405

REACTIONS (1)
  - Pneumonia [Recovering/Resolving]
